FAERS Safety Report 9169500 (Version 4)
Quarter: 2014Q1

REPORT INFORMATION
  Report Type: Spontaneous
  Country: US (occurrence: US)
  Receive Date: 20130318
  Receipt Date: 20140319
  Transmission Date: 20141002
  Serious: Yes (Hospitalization, Other)
  Sender: FDA-Public Use
  Company Number: US-009507513-1303USA007559

PATIENT
  Sex: Female
  Weight: 135 kg

DRUGS (5)
  1. FOSAMAX [Suspect]
     Indication: OSTEOPOROSIS
     Dosage: 70 MG, UNK
     Route: 048
     Dates: start: 2008, end: 2012
  2. FOSAMAX [Suspect]
     Dosage: 10 MG, DAILY
     Route: 048
     Dates: start: 20030902
  3. METFORMIN [Concomitant]
     Indication: DIABETES MELLITUS
  4. ALENDRONATE SODIUM [Suspect]
     Indication: OSTEOPOROSIS
     Dosage: 70 MG, QW
     Route: 048
  5. ONE-A-DAY ESSENTIAL VITAMINS [Concomitant]
     Dosage: 1 DF, QD
     Dates: start: 2002

REACTIONS (25)
  - Femur fracture [Unknown]
  - Femur fracture [Unknown]
  - Intramedullary rod insertion [Unknown]
  - Intramedullary rod insertion [Unknown]
  - Cholecystectomy [Unknown]
  - Medical device removal [Unknown]
  - Low turnover osteopathy [Unknown]
  - Depression [Unknown]
  - Anxiety [Unknown]
  - Rheumatoid arthritis [Unknown]
  - Hypothyroidism [Unknown]
  - Blood cholesterol increased [Unknown]
  - Gout [Unknown]
  - Hernia repair [Unknown]
  - Urinary incontinence [Unknown]
  - Intertrigo [Unknown]
  - Fall [Unknown]
  - Fall [Unknown]
  - Appendicectomy [Unknown]
  - Iron deficiency anaemia [Unknown]
  - Insomnia [Not Recovered/Not Resolved]
  - Hysterectomy [Unknown]
  - Restless legs syndrome [Unknown]
  - Pain [Not Recovered/Not Resolved]
  - Arthralgia [Not Recovered/Not Resolved]
